FAERS Safety Report 4964526-4 (Version None)
Quarter: 2006Q2

REPORT INFORMATION
  Report Type: 
  Country: None (occurrence: None)
  Receive Date: 20060406
  Receipt Date: 20051101
  Transmission Date: 20061013
  Serious: Yes (Life-Threatening)
  Sender: FDA-Public Use
  Company Number: JP-GLAXOSMITHKLINE-B0399010A

PATIENT
  Age: 42 Year
  Sex: Male
  Weight: 72 kg

DRUGS (32)
  1. ALKERAN [Suspect]
     Indication: STEM CELL TRANSPLANT
     Dosage: 80MGM2 PER DAY
     Route: 042
     Dates: start: 20050523, end: 20050523
  2. FUNGIZONE [Suspect]
     Route: 065
  3. TARGOCID [Suspect]
     Route: 042
  4. FUNGUARD [Suspect]
     Dosage: 75MG PER DAY
     Route: 042
     Dates: start: 20050530, end: 20050603
  5. FUNGUARD [Suspect]
     Dosage: 75MG PER DAY
     Route: 042
     Dates: start: 20050808, end: 20050821
  6. OMEGACIN [Suspect]
     Dosage: .6G PER DAY
     Route: 042
     Dates: start: 20050530, end: 20050603
  7. OMEGACIN [Suspect]
     Dosage: .6G PER DAY
     Route: 042
     Dates: start: 20050821, end: 20050829
  8. FLUDARA [Concomitant]
     Indication: STEM CELL TRANSPLANT
     Route: 042
     Dates: start: 20050518, end: 20050522
  9. NEUTROGIN [Concomitant]
     Dates: start: 20050530, end: 20050606
  10. NEUTROGIN [Concomitant]
     Dates: start: 20050725, end: 20050727
  11. NEUTROGIN [Concomitant]
     Dates: start: 20050808, end: 20050821
  12. NEUTROGIN [Concomitant]
     Dates: start: 20050901, end: 20050921
  13. CYCLOSPORINE [Concomitant]
     Indication: IMMUNOSUPPRESSANT DRUG THERAPY
     Route: 065
     Dates: start: 20050524, end: 20051019
  14. TACROLIMUS HYDRATE [Concomitant]
     Indication: IMMUNOSUPPRESSANT DRUG THERAPY
     Route: 065
     Dates: start: 20051019
  15. PREDONINE [Concomitant]
     Indication: IMMUNOSUPPRESSANT DRUG THERAPY
     Route: 065
     Dates: start: 20050603, end: 20050901
  16. PREDONINE [Concomitant]
     Route: 065
     Dates: start: 20050913
  17. SOLU-CORTEF [Concomitant]
     Indication: IMMUNOSUPPRESSANT DRUG THERAPY
     Dates: start: 20050815, end: 20050818
  18. ZOVIRAX [Concomitant]
     Route: 048
     Dates: start: 20050518, end: 20050531
  19. CRAVIT [Concomitant]
     Route: 048
     Dates: start: 20050522, end: 20050530
  20. CRAVIT [Concomitant]
     Route: 048
     Dates: start: 20050620, end: 20050630
  21. CRAVIT [Concomitant]
     Route: 048
     Dates: start: 20050722, end: 20050801
  22. DIFLUCAN [Concomitant]
     Route: 048
     Dates: start: 20050523, end: 20050530
  23. DIFLUCAN [Concomitant]
     Route: 048
     Dates: start: 20050612, end: 20050801
  24. PENTCILLIN [Concomitant]
     Dates: start: 20050524, end: 20050530
  25. BAKTAR [Concomitant]
     Route: 048
     Dates: start: 20050521, end: 20050524
  26. PRODIF [Concomitant]
     Route: 042
     Dates: start: 20050607, end: 20050611
  27. ADENOSINE [Concomitant]
     Route: 042
     Dates: start: 20050627, end: 20050814
  28. ADENOSINE [Concomitant]
     Route: 042
     Dates: start: 20050812, end: 20050824
  29. MEROPEN [Concomitant]
     Route: 042
     Dates: start: 20050629, end: 20050706
  30. MEROPEN [Concomitant]
     Route: 042
     Dates: start: 20050726, end: 20050730
  31. MEROPEN [Concomitant]
     Route: 042
     Dates: start: 20050807, end: 20050820
  32. GASTER D [Concomitant]
     Route: 048
     Dates: start: 20050516, end: 20050531

REACTIONS (5)
  - ALANINE AMINOTRANSFERASE INCREASED [None]
  - ASPARTATE AMINOTRANSFERASE INCREASED [None]
  - BLOOD BILIRUBIN INCREASED [None]
  - GRAFT VERSUS HOST DISEASE [None]
  - LIVER DISORDER [None]
